FAERS Safety Report 7057340-X (Version None)
Quarter: 2010Q4

REPORT INFORMATION
  Report Type: 
  Country: None (occurrence: None)
  Receive Date: 20101022
  Receipt Date: 20101019
  Transmission Date: 20110411
  Serious: Yes (Death, Hospitalization)
  Sender: FDA-Public Use
  Company Number: JP-SANOFI-AVENTIS-2010SA063716

PATIENT
  Age: 58 Year
  Sex: Male

DRUGS (5)
  1. OXALIPLATIN [Suspect]
     Indication: LARGE INTESTINE CARCINOMA
     Route: 041
  2. AVASTIN [Suspect]
     Indication: LARGE INTESTINE CARCINOMA
     Route: 041
     Dates: start: 20080701, end: 20080701
  3. AVASTIN [Suspect]
     Route: 041
     Dates: start: 20090501, end: 20090501
  4. CALCIUM LEVOFOLINATE [Concomitant]
  5. FLUOROURACIL [Concomitant]

REACTIONS (2)
  - DISEASE PROGRESSION [None]
  - POLYMYOSITIS [None]
